FAERS Safety Report 9403257 (Version 3)
Quarter: 2013Q3

REPORT INFORMATION
  Report Type: Spontaneous
  Country: US (occurrence: US)
  Receive Date: 20130716
  Receipt Date: 20130906
  Transmission Date: 20140515
  Serious: No
  Sender: FDA-Public Use
  Company Number: US-009507513-1307USA007053

PATIENT
  Age: 53 Year
  Sex: Female

DRUGS (5)
  1. VICTRELIS [Suspect]
     Indication: HEPATITIS C
     Dosage: 800 MG, EVERY 8 HOURS
     Route: 048
     Dates: start: 20130611
  2. VICTRELIS [Suspect]
     Dosage: 800 MG, EVERY 8 HOURS
     Route: 048
     Dates: start: 201306
  3. RIBASPHERE [Suspect]
     Dosage: 600 MG, BID
  4. PEGASYS [Suspect]
     Dosage: 180 MICROGRAM, QW
     Route: 058
  5. PROCRIT [Concomitant]
     Dosage: 40000U, QW
     Route: 058

REACTIONS (3)
  - Muscle spasms [Not Recovered/Not Resolved]
  - Constipation [Unknown]
  - Anaemia [Not Recovered/Not Resolved]
